FAERS Safety Report 14899012 (Version 1)
Quarter: 2018Q2

REPORT INFORMATION
  Report Type: Spontaneous
  Country: FR (occurrence: FR)
  Receive Date: 20180516
  Receipt Date: 20180516
  Transmission Date: 20180711
  Serious: Yes (Hospitalization, Other)
  Sender: FDA-Public Use
  Company Number: FR-MERCK KGAA-2047845

PATIENT
  Age: 53 Year
  Sex: Female

DRUGS (1)
  1. NOVOTHYROX [Suspect]
     Active Substance: LEVOTHYROXINE SODIUM
     Indication: HYPOTHYROIDISM

REACTIONS (27)
  - Thyroxine free decreased [None]
  - Anti-thyroid antibody positive [None]
  - Fatigue [Recovered/Resolved]
  - Pain [Recovered/Resolved]
  - Blood thyroid stimulating hormone abnormal [None]
  - Weight increased [Recovered/Resolved]
  - Loss of consciousness [Recovered/Resolved]
  - Memory impairment [Recovered/Resolved]
  - Depression [Recovered/Resolved]
  - Bedridden [Recovered/Resolved]
  - Balance disorder [Recovered/Resolved]
  - C-reactive protein increased [None]
  - Alopecia [Recovered/Resolved]
  - Mood swings [Recovered/Resolved]
  - Aggression [Recovered/Resolved]
  - Intervertebral disc protrusion [Recovered/Resolved]
  - Hospitalisation [Recovered/Resolved]
  - Gait disturbance [Recovered/Resolved]
  - Headache [Recovered/Resolved]
  - Vertigo [Recovered/Resolved]
  - Accident at work [None]
  - Asthenia [Recovered/Resolved]
  - Myalgia [Recovered/Resolved]
  - Confusional state [Recovered/Resolved]
  - Malaise [Recovered/Resolved]
  - Sleep disorder [Recovered/Resolved]
  - Deafness [Not Recovered/Not Resolved]

NARRATIVE: CASE EVENT DATE: 20170529
